FAERS Safety Report 13466187 (Version 1)
Quarter: 2017Q2

REPORT INFORMATION
  Report Type: Spontaneous
  Country: US (occurrence: US)
  Receive Date: 20170421
  Receipt Date: 20170421
  Transmission Date: 20170830
  Serious: No
  Sender: FDA-Public Use
  Company Number: US-PFIZER INC-2017174716

PATIENT
  Age: 34 Year
  Sex: Female

DRUGS (2)
  1. LETROZOLE. [Concomitant]
     Active Substance: LETROZOLE
     Dosage: UNK
  2. IBRANCE [Suspect]
     Active Substance: PALBOCICLIB
     Dosage: 125 MG, CYCLIC (1 CAPSULE BY MOUTH EVERY DAY FOR 3 WEEKS ON 1 WEEK OFF)
     Route: 048
     Dates: start: 201703

REACTIONS (3)
  - Depression [Unknown]
  - Skin exfoliation [Unknown]
  - Skin discolouration [Unknown]
